FAERS Safety Report 6986705-7 (Version None)
Quarter: 2010Q3

REPORT INFORMATION
  Report Type: 
  Country: None (occurrence: None)
  Receive Date: 20100915
  Receipt Date: 20090727
  Transmission Date: 20110219
  Serious: No
  Sender: FDA-Public Use
  Company Number: US-WYE-H10340309

PATIENT
  Sex: Female
  Weight: 110.32 kg

DRUGS (7)
  1. PRISTIQ [Suspect]
     Indication: DEPRESSION
     Route: 048
     Dates: start: 20090620
  2. CLONAZEPAM [Concomitant]
  3. HYDROXYCHLOROQUINE [Concomitant]
  4. TOPIRAMATE [Concomitant]
  5. OXYCODONE [Concomitant]
  6. METHADONE [Concomitant]
  7. LEVOXYL [Concomitant]

REACTIONS (8)
  - BRUXISM [None]
  - CONDITION AGGRAVATED [None]
  - DRY MOUTH [None]
  - DYSKINESIA [None]
  - FATIGUE [None]
  - MUSCLE SPASMS [None]
  - MYALGIA [None]
  - NIGHTMARE [None]
